FAERS Safety Report 9538041 (Version 2)
Quarter: 2013Q4

REPORT INFORMATION
  Report Type: Spontaneous
  Country: JP (occurrence: JP)
  Receive Date: 20130920
  Receipt Date: 20131225
  Transmission Date: 20140711
  Serious: Yes (Hospitalization)
  Sender: FDA-Public Use
  Company Number: JP-ROCHE-1277195

PATIENT
  Age: 10 Year
  Sex: Female
  Weight: 29.8 kg

DRUGS (8)
  1. CELLCEPT [Suspect]
     Indication: NEPHROTIC SYNDROME
     Dosage: DOSAGE IS UNCERTAIN.
     Route: 048
  2. CELLCEPT [Suspect]
     Indication: NEPHROTIC SYNDROME
     Dosage: DOSAGE IS UNCERTAIN.
     Route: 048
  3. RITUXAN [Suspect]
     Indication: NEPHROTIC SYNDROME
     Route: 041
     Dates: start: 20120227, end: 20120227
  4. BAKTAR [Suspect]
     Indication: PROPHYLAXIS
     Dosage: DOSAGE IS UNCERTAIN.
     Route: 048
     Dates: start: 20120228
  5. NEORAL [Concomitant]
     Indication: NEPHROTIC SYNDROME
     Dosage: DOSAGE IS UNCERTAIN.
     Route: 065
  6. NORVASC [Concomitant]
     Indication: HYPERTENSION
     Dosage: DOSAGE IS UNCERTAIN.
     Route: 048
  7. BONALON [Concomitant]
     Indication: OSTEOPOROSIS
     Dosage: DOSAGE IS UNCERTAIN.
     Route: 048
  8. BLOPRESS [Concomitant]
     Indication: HYPERTENSION
     Dosage: DOSAGE IS UNCERTAIN.
     Route: 048
     Dates: start: 20120228

REACTIONS (1)
  - Agranulocytosis [Recovered/Resolved]
